FAERS Safety Report 19974755 (Version 2)
Quarter: 2024Q3

REPORT INFORMATION
  Report Type: Report from Study
  Country: US (occurrence: US)
  Receive Date: 20211020
  Receipt Date: 20240710
  Transmission Date: 20241016
  Serious: Yes (Death, Hospitalization, Other)
  Sender: INSMED
  Company Number: US-INSMED, INC.-2021-09354-US

PATIENT
  Sex: Female

DRUGS (3)
  1. ARIKAYCE [Suspect]
     Active Substance: AMIKACIN
     Indication: Mycobacterium avium complex infection
     Dosage: 590 MILLIGRAM, QD
     Route: 055
     Dates: start: 20210910, end: 202209
  2. ARIKAYCE [Suspect]
     Active Substance: AMIKACIN
     Dosage: 590 MILLIGRAM, QD
     Route: 055
     Dates: start: 202209, end: 2024
  3. COVID-19 VACCINE [Concomitant]
     Indication: Prophylaxis
     Dosage: UNK
     Route: 065
     Dates: start: 20220120

REACTIONS (23)
  - Death [Fatal]
  - Dependence on oxygen therapy [Not Recovered/Not Resolved]
  - Pneumonia [Unknown]
  - Dyspnoea exertional [Unknown]
  - Chronic obstructive pulmonary disease [Unknown]
  - Bronchial secretion retention [Unknown]
  - Nasopharyngitis [Unknown]
  - Influenza like illness [Unknown]
  - Sleep disorder [Not Recovered/Not Resolved]
  - Gastroenteritis viral [Not Recovered/Not Resolved]
  - Infection [Unknown]
  - Irritable bowel syndrome [Not Recovered/Not Resolved]
  - Abdominal discomfort [Not Recovered/Not Resolved]
  - Abdominal pain upper [Unknown]
  - Fatigue [Not Recovered/Not Resolved]
  - Unevaluable event [Not Recovered/Not Resolved]
  - Asthenia [Unknown]
  - Malaise [Not Recovered/Not Resolved]
  - Cough [Unknown]
  - Dyspnoea [Not Recovered/Not Resolved]
  - Intentional dose omission [Unknown]
  - Product dose omission issue [Unknown]
  - Device issue [Unknown]

NARRATIVE: CASE EVENT DATE: 20210101
